FAERS Safety Report 20008825 (Version 1)
Quarter: 2021Q4

REPORT INFORMATION
  Report Type: Spontaneous
  Country: US (occurrence: US)
  Receive Date: 20211028
  Receipt Date: 20211028
  Transmission Date: 20220303
  Serious: No
  Sender: FDA-Public Use
  Company Number: US-ELI_LILLY_AND_COMPANY-US202110001230

PATIENT
  Sex: Female

DRUGS (6)
  1. BASAGLAR [Suspect]
     Active Substance: INSULIN GLARGINE
     Indication: Type 2 diabetes mellitus
     Dosage: 36 U, EACH MORNING
     Route: 058
     Dates: start: 20210916
  2. BASAGLAR [Suspect]
     Active Substance: INSULIN GLARGINE
     Indication: Type 2 diabetes mellitus
     Dosage: 36 U, EACH MORNING
     Route: 058
     Dates: start: 20210916
  3. BASAGLAR [Suspect]
     Active Substance: INSULIN GLARGINE
     Indication: Type 2 diabetes mellitus
     Dosage: 36 U, EACH MORNING
     Route: 058
     Dates: start: 20210916
  4. BASAGLAR [Suspect]
     Active Substance: INSULIN GLARGINE
     Dosage: 42 U, EACH EVENING
     Route: 058
     Dates: start: 20210916
  5. BASAGLAR [Suspect]
     Active Substance: INSULIN GLARGINE
     Dosage: 42 U, EACH EVENING
     Route: 058
     Dates: start: 20210916
  6. BASAGLAR [Suspect]
     Active Substance: INSULIN GLARGINE
     Dosage: 42 U, EACH EVENING
     Route: 058
     Dates: start: 20210916

REACTIONS (2)
  - Vision blurred [Recovered/Resolved]
  - Visual impairment [Unknown]
